FAERS Safety Report 5803789-X (Version None)
Quarter: 2008Q3

REPORT INFORMATION
  Report Type: 
  Country: None (occurrence: None)
  Receive Date: 20080708
  Receipt Date: 20080506
  Transmission Date: 20090109
  Serious: Yes (Other)
  Sender: FDA-Public Use
  Company Number: US-AMGEN-US277855

PATIENT
  Sex: Female

DRUGS (3)
  1. KINERET [Suspect]
     Indication: RHEUMATOID ARTHRITIS
     Dates: start: 20030812, end: 20030910
  2. PREDNISONE TAB [Concomitant]
     Dates: start: 20021201
  3. METHOTREXATE [Concomitant]
     Dates: start: 20021201

REACTIONS (1)
  - RASH [None]
